FAERS Safety Report 7559202-8 (Version None)
Quarter: 2011Q2

REPORT INFORMATION
  Report Type: 
  Country: None (occurrence: None)
  Receive Date: 20110621
  Receipt Date: 20110607
  Transmission Date: 20111010
  Serious: Yes (Other)
  Sender: FDA-Public Use
  Company Number: JP-TYCO HEALTHCARE/MALLINCKRODT-T201101256

PATIENT

DRUGS (1)
  1. SODIUM IODIDE I-131 SOLUTION [Suspect]
     Dosage: MEAN DOSE 40.4 +/- 33.0 MCI

REACTIONS (1)
  - NEONATAL THYROTOXICOSIS [None]
